FAERS Safety Report 16425193 (Version 2)
Quarter: 2019Q4

REPORT INFORMATION
  Report Type: Spontaneous
  Country: US (occurrence: US)
  Receive Date: 20190613
  Receipt Date: 20191205
  Transmission Date: 20200122
  Serious: Yes (Other)
  Sender: FDA-Public Use
  Company Number: US-SUN PHARMACEUTICAL INDUSTRIES LTD-2019R1-210566

PATIENT
  Age: 69 Year
  Sex: Male

DRUGS (1)
  1. MESALAZINE [Suspect]
     Active Substance: MESALAMINE
     Indication: COLITIS ULCERATIVE
     Dosage: 2.4 GRAM, DAILY
     Route: 065

REACTIONS (18)
  - Blood urea abnormal [Unknown]
  - Haemoglobin abnormal [Unknown]
  - Acute kidney injury [Unknown]
  - Confusional state [Unknown]
  - Blood albumin abnormal [Unknown]
  - Vomiting [Unknown]
  - Fatigue [Unknown]
  - Nausea [Unknown]
  - Oliguria [Unknown]
  - Somnolence [Unknown]
  - Respiratory disorder [Unknown]
  - Bowel movement irregularity [Unknown]
  - Urinary retention [Unknown]
  - Toxicity to various agents [Unknown]
  - Metabolic acidosis [Unknown]
  - Blood creatinine abnormal [Unknown]
  - Blood gases abnormal [Unknown]
  - Asthenia [Unknown]
